FAERS Safety Report 5738994-4 (Version None)
Quarter: 2008Q2

REPORT INFORMATION
  Report Type: 
  Country: None (occurrence: None)
  Receive Date: 20080515
  Receipt Date: 20080430
  Transmission Date: 20081010
  Serious: Yes (Hospitalization)
  Sender: FDA-Public Use
  Company Number: FR-PFIZER INC-033-1343-M0200012

PATIENT
  Sex: Female
  Weight: 3.1 kg

DRUGS (5)
  1. VIRACEPT [Suspect]
     Indication: HIV INFECTION
     Route: 048
  2. VIDEX [Suspect]
     Indication: HIV INFECTION
     Dosage: DAILY DOSE:250MG
     Route: 048
  3. STAVUDINE [Suspect]
     Indication: HIV INFECTION
     Dosage: DAILY DOSE:60MG-FREQ:UNK
     Route: 048
  4. STAVUDINE [Suspect]
     Indication: ILL-DEFINED DISORDER
     Dosage: FREQ:UNKNOWN
     Route: 065
  5. ZIDOVUDINE [Suspect]
     Indication: HIV INFECTION
     Dosage: FREQ:UNK
     Route: 042

REACTIONS (10)
  - ARTHROPATHY [None]
  - BLOOD LACTATE DEHYDROGENASE INCREASED [None]
  - BLOOD LACTIC ACID INCREASED [None]
  - CONGENITAL CYSTIC KIDNEY DISEASE [None]
  - CONNECTIVE TISSUE DISORDER [None]
  - HYPERTRIGLYCERIDAEMIA [None]
  - LABORATORY TEST ABNORMAL [None]
  - LACTIC ACIDOSIS [None]
  - NEUROPATHY PERIPHERAL [None]
  - NEUTROPENIA [None]
